FAERS Safety Report 11615873 (Version 3)
Quarter: 2015Q4

REPORT INFORMATION
  Report Type: Spontaneous
  Country: US (occurrence: US)
  Receive Date: 20151009
  Receipt Date: 20151109
  Transmission Date: 20160304
  Serious: Yes (Hospitalization, Other)
  Sender: FDA-Public Use
  Company Number: US-GLAXOSMITHKLINE-US2015140851

PATIENT
  Age: 57 Year
  Sex: Female

DRUGS (18)
  1. FLONASE [Suspect]
     Active Substance: FLUTICASONE PROPIONATE
     Indication: ALLERGIC SINUSITIS
  2. LOSARTAN POTASSIUM. [Concomitant]
     Active Substance: LOSARTAN POTASSIUM
  3. TIZANIDINE. [Concomitant]
     Active Substance: TIZANIDINE
     Dosage: UNK
  4. NORCO [Concomitant]
     Active Substance: ACETAMINOPHEN\HYDROCODONE BITARTRATE
  5. ADVAIR DISKUS [Suspect]
     Active Substance: FLUTICASONE PROPIONATE\SALMETEROL XINAFOATE
     Indication: ASTHMA
  6. COLCRYS [Concomitant]
     Active Substance: COLCHICINE
     Dosage: UNK
  7. ALBUTEROL INHALER [Concomitant]
     Active Substance: ALBUTEROL
     Dosage: UNK
  8. LORATADINE. [Concomitant]
     Active Substance: LORATADINE
  9. OMEPRAZOLE. [Concomitant]
     Active Substance: OMEPRAZOLE
     Dosage: UNK
  10. METFORMIN [Concomitant]
     Active Substance: METFORMIN HYDROCHLORIDE
  11. ALBUTEROL NEBULIZER [Concomitant]
     Active Substance: ALBUTEROL
  12. PROMETHAZINE HYDROCHLORIDE. [Concomitant]
     Active Substance: PROMETHAZINE HYDROCHLORIDE
  13. ADVAIR DISKUS [Suspect]
     Active Substance: FLUTICASONE PROPIONATE\SALMETEROL XINAFOATE
     Indication: CHRONIC OBSTRUCTIVE PULMONARY DISEASE
     Dosage: 1 PUFF(S), BID
     Route: 055
     Dates: start: 2001
  14. ADVAIR DISKUS [Suspect]
     Active Substance: FLUTICASONE PROPIONATE\SALMETEROL XINAFOATE
     Indication: EMPHYSEMA
  15. SPIRIVA [Concomitant]
     Active Substance: TIOTROPIUM BROMIDE MONOHYDRATE
  16. COMBIVENT [Concomitant]
     Active Substance: ALBUTEROL SULFATE\IPRATROPIUM BROMIDE
     Dosage: UNK
  17. ASPIRIN. [Concomitant]
     Active Substance: ASPIRIN
     Dosage: UNK
  18. PREDNISONE. [Concomitant]
     Active Substance: PREDNISONE

REACTIONS (14)
  - Drug ineffective [Recovering/Resolving]
  - Product quality issue [Unknown]
  - Diabetes mellitus [Unknown]
  - Choking [Recovering/Resolving]
  - Fall [Unknown]
  - Neck injury [Unknown]
  - Cardiac failure congestive [Recovering/Resolving]
  - Sinusitis [Unknown]
  - Joint injury [Unknown]
  - Disability [Not Recovered/Not Resolved]
  - Productive cough [Recovering/Resolving]
  - Malaise [Unknown]
  - Cough [Recovering/Resolving]
  - Drug dose omission [Unknown]

NARRATIVE: CASE EVENT DATE: 201206
